FAERS Safety Report 7428585-1 (Version None)
Quarter: 2011Q2

REPORT INFORMATION
  Report Type: 
  Country: None (occurrence: None)
  Receive Date: 20110421
  Receipt Date: 20091122
  Transmission Date: 20111010
  Serious: Yes (Death, Other)
  Sender: FDA-Public Use
  Company Number: US-BAYER-201039767NA

PATIENT
  Age: 77 Year
  Sex: Female
  Weight: 68.027 kg

DRUGS (13)
  1. SYNTHROID [Concomitant]
     Dosage: 0.1 MG, QD
     Route: 048
     Dates: start: 20060508
  2. LYRICA [Concomitant]
     Dosage: 25 MG, BID
     Route: 048
     Dates: start: 20060801
  3. DIOVAN [Concomitant]
     Dosage: 320 MG, QD
     Route: 048
     Dates: start: 20060801
  4. ZOCOR [Concomitant]
     Dosage: 20 MG, QD
     Route: 048
  5. REGLAN [Concomitant]
     Dosage: 5 MG, BID-QID
     Route: 048
     Dates: start: 20061214
  6. TYLENOL REGULAR [Concomitant]
     Dosage: PRN
     Route: 048
  7. VANCOMYCIN [Concomitant]
     Dosage: UNK
     Route: 042
     Dates: start: 20070612, end: 20070613
  8. TRASYLOL [Suspect]
     Indication: CORONARY ARTERY BYPASS
     Dosage: UNK
     Route: 042
     Dates: start: 20060519
  9. ASPIRIN [Concomitant]
     Dosage: 325 MG, UNK
     Route: 048
     Dates: start: 20061214
  10. GENTAMICIN [Concomitant]
     Dosage: UNK
     Route: 042
     Dates: start: 20070612, end: 20070614
  11. ADVIL LIQUI-GELS [Concomitant]
     Dosage: PRN
     Route: 048
  12. NORVASC [Concomitant]
     Dosage: 5 MG, QD
     Route: 048
     Dates: start: 20060801
  13. ALEVE [Concomitant]
     Dosage: PRN
     Route: 048

REACTIONS (11)
  - UNEVALUABLE EVENT [None]
  - RENAL IMPAIRMENT [None]
  - RENAL INJURY [None]
  - DEATH [None]
  - PAIN [None]
  - FEAR [None]
  - ANXIETY [None]
  - EMOTIONAL DISTRESS [None]
  - STRESS [None]
  - RENAL FAILURE [None]
  - MULTI-ORGAN FAILURE [None]
